FAERS Safety Report 19539678 (Version 11)
Quarter: 2022Q1

REPORT INFORMATION
  Report Type: Report from Study
  Country: CA (occurrence: CA)
  Receive Date: 20210713
  Receipt Date: 20220211
  Transmission Date: 20220423
  Serious: Yes (Hospitalization, Other)
  Sender: FDA-Public Use
  Company Number: CA-SAMSUNG BIOEPIS-SB-2021-13058

PATIENT
  Age: 24 Year
  Sex: Female
  Weight: 55 kg

DRUGS (7)
  1. RENFLEXIS [Suspect]
     Active Substance: INFLIXIMAB-ABDA
     Indication: Crohn^s disease
     Route: 042
     Dates: start: 20210409
  2. RENFLEXIS [Suspect]
     Active Substance: INFLIXIMAB-ABDA
     Dosage: VIAL
     Route: 065
  3. COVID-19 VACCINE NOS [Suspect]
     Active Substance: COVID-19 VACCINE NOS
     Indication: Product used for unknown indication
     Dosage: UNKNOWN
     Route: 065
  4. BENADRYL [Concomitant]
     Active Substance: DIPHENHYDRAMINE HYDROCHLORIDE
     Indication: Product used for unknown indication
     Dosage: UNKNOWN, PRN
     Route: 065
  5. ATROVENT [Concomitant]
     Active Substance: IPRATROPIUM BROMIDE
     Indication: Product used for unknown indication
     Dosage: UNKNOWN, PRN
     Route: 065
  6. SYMBICORT [Concomitant]
     Active Substance: BUDESONIDE\FORMOTEROL FUMARATE DIHYDRATE
     Indication: Product used for unknown indication
     Dosage: UNKNOWN, PRN
     Route: 065
  7. BUTYLSCOPOLAMINE BROMIDE [Concomitant]
     Active Substance: BUTYLSCOPOLAMINE BROMIDE
     Indication: Product used for unknown indication
     Dosage: UNKNOWN, PRN
     Route: 065

REACTIONS (17)
  - Crohn^s disease [Unknown]
  - Chest discomfort [Recovered/Resolved]
  - Feeling hot [Unknown]
  - Heart rate increased [Unknown]
  - Anaphylactic reaction [Unknown]
  - Mental disorder [Not Recovered/Not Resolved]
  - Vomiting [Not Recovered/Not Resolved]
  - Physical assault [Unknown]
  - Dizziness [Recovering/Resolving]
  - Headache [Recovering/Resolving]
  - Rash [Not Recovered/Not Resolved]
  - Asthenia [Unknown]
  - Stress [Unknown]
  - Partner stress [Unknown]
  - Psoriasis [Unknown]
  - Feeling abnormal [Not Recovered/Not Resolved]
  - Product use issue [Unknown]

NARRATIVE: CASE EVENT DATE: 20210706
